FAERS Safety Report 21926766 (Version 1)
Quarter: 2023Q1

REPORT INFORMATION
  Report Type: Spontaneous
  Country: US (occurrence: US)
  Receive Date: 20230130
  Receipt Date: 20230130
  Transmission Date: 20230418
  Serious: Yes (Other)
  Sender: FDA-Public Use
  Company Number: US-002147023-NVSC2023US016674

PATIENT
  Sex: Female

DRUGS (1)
  1. TOBRAMYCIN [Suspect]
     Active Substance: TOBRAMYCIN
     Indication: Mycobacterium avium complex infection
     Dosage: UNK, CYCLIC
     Route: 065

REACTIONS (4)
  - Bronchiectasis [Unknown]
  - Mycobacterium avium complex infection [Unknown]
  - Condition aggravated [Unknown]
  - Bacterial disease carrier [Unknown]
